FAERS Safety Report 8409455-9 (Version None)
Quarter: 2012Q2

REPORT INFORMATION
  Report Type: 
  Country: None (occurrence: None)
  Receive Date: 20120605
  Receipt Date: 20120522
  Transmission Date: 20120825
  Serious: Yes (Death, Life-Threatening, Congenital Anomaly, Other)
  Sender: FDA-Public Use
  Company Number: DE-RANBAXY-2012RR-56775

PATIENT
  Sex: Male
  Weight: 2.8 kg

DRUGS (4)
  1. METFORMIN HCL [Suspect]
     Dosage: 1500MG/DAY UNTIL GW 18
     Route: 064
     Dates: start: 20091015
  2. METFORMIN HCL [Suspect]
     Dosage: 1000 MG/DAY UNTIL  DELIVERY
     Route: 064
     Dates: end: 20100629
  3. FOLSAURE [Concomitant]
     Indication: PROPHYLAXIS OF NEURAL TUBE DEFECT
     Dosage: 0.4 MG/DAY; 0-12 GW
     Route: 064
  4. PRESINOL [Concomitant]
     Dosage: 1500 MG/DAY; 29-36.5 GW
     Route: 064
     Dates: end: 20100629

REACTIONS (7)
  - CONGENITAL THROMBOCYTE DISORDER [None]
  - FEEDING DISORDER NEONATAL [None]
  - HYPOXIC-ISCHAEMIC ENCEPHALOPATHY [None]
  - NEONATAL RESPIRATORY DISTRESS SYNDROME [None]
  - CEREBRAL HAEMORRHAGE FOETAL [None]
  - HYPOSPADIAS [None]
  - MACROCEPHALY [None]
